FAERS Safety Report 9645734 (Version 1)
Quarter: 2013Q4

REPORT INFORMATION
  Report Type: Spontaneous
  Country: US (occurrence: None)
  Receive Date: 20131024
  Receipt Date: 20131024
  Transmission Date: 20140711
  Serious: Yes (Hospitalization)
  Sender: FDA-Public Use
  Company Number: None

PATIENT
  Age: 59 Year
  Sex: Female
  Weight: 67 kg

DRUGS (1)
  1. NEXAVAR 200 MG BAYER [Suspect]
     Indication: HEPATOCELLULAR CARCINOMA
     Dosage: 2 TABLETS (400MG)
     Route: 048
     Dates: start: 20130707, end: 20130714

REACTIONS (3)
  - Toxic epidermal necrolysis [None]
  - Impaired self-care [None]
  - Activities of daily living impaired [None]
